FAERS Safety Report 8882613 (Version 1)
Quarter: 2012Q4

REPORT INFORMATION
  Report Type: 
  Country: FR (occurrence: FR)
  Receive Date: 20121102
  Receipt Date: 20121102
  Transmission Date: 20130627
  Serious: Yes (Hospitalization)
  Sender: FDA-Public Use
  Company Number: PHHY2012FR097408

PATIENT
  Age: 65 Year
  Sex: Male

DRUGS (3)
  1. CICLOSPORIN [Suspect]
  2. MYCOPHENOLATE MOFETIL [Concomitant]
  3. STEROIDS NOS [Concomitant]

REACTIONS (14)
  - Guillain-Barre syndrome [Recovered/Resolved]
  - Acute respiratory failure [Recovered/Resolved]
  - Gastrointestinal ischaemia [Unknown]
  - Septic shock [Unknown]
  - Lung infection [Unknown]
  - VIIth nerve paralysis [Recovered/Resolved]
  - Quadriparesis [Recovered/Resolved]
  - Hepatitis E [Recovered/Resolved]
  - Myositis [Recovered/Resolved]
  - Muscular weakness [Recovered/Resolved]
  - Radiculopathy [Recovered/Resolved]
  - Hyporeflexia [Recovered/Resolved]
  - Jaundice [Recovered/Resolved]
  - Immunosuppressant drug level decreased [Unknown]
